FAERS Safety Report 9056208 (Version 1)
Quarter: 2013Q1

REPORT INFORMATION
  Report Type: Spontaneous
  Country: FR (occurrence: FR)
  Receive Date: 20130205
  Receipt Date: 20130205
  Transmission Date: 20140127
  Serious: Yes (Hospitalization)
  Sender: FDA-Public Use
  Company Number: FR-SANOFI-AVENTIS-2013SA007694

PATIENT
  Age: 55 Year
  Sex: Male

DRUGS (13)
  1. COLIMYCINE [Suspect]
     Indication: INFECTION
     Route: 065
     Dates: start: 20120316, end: 20120428
  2. RIFADINE [Suspect]
     Indication: INFECTION
     Route: 065
     Dates: start: 20120406, end: 20120428
  3. CIFLOX [Suspect]
     Indication: INFECTION
     Route: 065
     Dates: start: 20120227
  4. TRIFLUCAN [Suspect]
     Indication: INFECTION
     Route: 065
     Dates: start: 20120307
  5. AMIKACIN [Suspect]
     Indication: INFECTION
     Route: 065
     Dates: start: 20120307
  6. TAZOCILLINE [Suspect]
     Indication: INFECTION
     Route: 065
     Dates: start: 20120227
  7. CILASTATIN/IMIPENEM [Suspect]
     Indication: INFECTION
     Route: 065
     Dates: start: 20120307
  8. ZYVOXID [Suspect]
     Indication: INFECTION
     Route: 065
     Dates: start: 20120307
  9. VANCOMYCIN [Suspect]
     Indication: INFECTION
     Route: 065
     Dates: start: 20120316, end: 20120331
  10. GENTAMICIN [Suspect]
     Indication: INFECTION
     Route: 065
     Dates: start: 20120316
  11. CANCIDAS [Suspect]
     Indication: INFECTION
     Route: 065
     Dates: start: 20120406, end: 20120428
  12. MEROPENEM [Suspect]
     Indication: INFECTION
     Route: 065
     Dates: start: 20120406, end: 20120428
  13. AXEPIM [Suspect]
     Indication: INFECTION
     Route: 065
     Dates: end: 20120428

REACTIONS (1)
  - Acquired haemophilia [Unknown]
